FAERS Safety Report 14433020 (Version 2)
Quarter: 2018Q2

REPORT INFORMATION
  Report Type: Report from Study
  Country: DE (occurrence: DE)
  Receive Date: 20180124
  Receipt Date: 20180426
  Transmission Date: 20180711
  Serious: Yes (Hospitalization)
  Sender: FDA-Public Use
  Company Number: DE-BIOGEN-2018BI00511535

PATIENT
  Age: 21 Year
  Sex: Female
  Weight: 97 kg

DRUGS (2)
  1. PNEUMOCOCCUS VACCINATION [Concomitant]
     Indication: PROPHYLAXIS
     Route: 058
     Dates: start: 20170828
  2. ZINBRYTA [Suspect]
     Active Substance: DACLIZUMAB
     Indication: RELAPSING-REMITTING MULTIPLE SCLEROSIS
     Route: 058
     Dates: start: 20170623, end: 20171020

REACTIONS (6)
  - Alanine aminotransferase increased [Unknown]
  - Eosinophil count increased [Unknown]
  - Lymphocyte count increased [Unknown]
  - Dermatitis exfoliative generalised [Recovered/Resolved]
  - Chills [Unknown]
  - Lymphadenopathy [Unknown]

NARRATIVE: CASE EVENT DATE: 201710
